FAERS Safety Report 5553613-8 (Version None)
Quarter: 2007Q4

REPORT INFORMATION
  Report Type: 
  Country: None (occurrence: None)
  Receive Date: 20071213
  Receipt Date: 20071205
  Transmission Date: 20080405
  Serious: Yes (Other)
  Sender: FDA-Public Use
  Company Number: AT-JNJFOC-20071202541

PATIENT
  Age: 39 Year
  Sex: Male
  Weight: 80 kg

DRUGS (6)
  1. REMICADE [Suspect]
     Indication: RHEUMATOID ARTHRITIS
  2. REMICADE [Suspect]
     Indication: CROHN'S DISEASE
  3. PREDNISOLONE [Concomitant]
     Indication: RHEUMATOID ARTHRITIS
  4. PREDNISOLONE [Concomitant]
     Indication: CROHN'S DISEASE
  5. PANTOPRAZOLE SODIUM [Concomitant]
     Indication: PROPHYLAXIS
  6. CALCIUM CARBONATE [Concomitant]
     Indication: OSTEOPOROSIS

REACTIONS (1)
  - MALIGNANT MELANOMA [None]
